FAERS Safety Report 4945224-X (Version None)
Quarter: 2006Q1

REPORT INFORMATION
  Report Type: 
  Country: None (occurrence: None)
  Receive Date: 20060118
  Receipt Date: 20050309
  Transmission Date: 20060701
  Serious: Yes (Death)
  Sender: FDA-Public Use
  Company Number: US-JNJFOC-20050202011

PATIENT
  Age: 65 Year
  Sex: Female

DRUGS (5)
  1. DOXIL [Suspect]
     Indication: OVARIAN CANCER
     Dosage: 50 MG, 1 IN 4 WEEK, INTRAVENOUS
     Route: 042
     Dates: start: 20020101, end: 20020101
  2. SINEQUAN [Concomitant]
  3. DEPAKOTE [Concomitant]
  4. IMITREX [Concomitant]
  5. ZANTAC [Concomitant]

REACTIONS (3)
  - MALIGNANT NEOPLASM PROGRESSION [None]
  - OVARIAN CANCER [None]
  - PALMAR-PLANTAR ERYTHRODYSAESTHESIA SYNDROME [None]
